FAERS Safety Report 12861377 (Version 1)
Quarter: 2016Q4

REPORT INFORMATION
  Report Type: Spontaneous
  Country: US (occurrence: US)
  Receive Date: 20161019
  Receipt Date: 20161019
  Transmission Date: 20170207
  Serious: Yes (Death, Other)
  Sender: FDA-Public Use
  Company Number: US-CIPLA LTD.-2016US19385

PATIENT

DRUGS (4)
  1. OLANZAPINE. [Suspect]
     Active Substance: OLANZAPINE
     Indication: PSYCHOMOTOR HYPERACTIVITY
     Dosage: 10 MG, UNK
     Route: 030
  2. QUETIAPINE. [Suspect]
     Active Substance: QUETIAPINE
     Dosage: 200 MG, UNK
     Route: 065
  3. LORAZEPAM. [Suspect]
     Active Substance: LORAZEPAM
     Dosage: UNK
     Route: 030
  4. PROMAZINE [Suspect]
     Active Substance: PROMAZINE
     Dosage: UNK
     Route: 030

REACTIONS (3)
  - Cardiac arrest [Fatal]
  - Arrhythmia [Fatal]
  - Dyspnoea [Unknown]
